FAERS Safety Report 6580154-1 (Version None)
Quarter: 2010Q1

REPORT INFORMATION
  Report Type: 
  Country: None (occurrence: None)
  Receive Date: 20100212
  Receipt Date: 20100203
  Transmission Date: 20100710
  Serious: Yes (Hospitalization)
  Sender: FDA-Public Use
  Company Number: US-WATSON-2010-01353

PATIENT
  Age: 20 Year
  Sex: Female

DRUGS (1)
  1. IBUPROFEN TABLETS [Suspect]
     Indication: PAIN
     Dosage: 600 MG, SINGLE

REACTIONS (3)
  - HYPERSENSITIVITY [None]
  - KOUNIS SYNDROME [None]
  - MYOCARDIAL INFARCTION [None]
